FAERS Safety Report 12651320 (Version 1)
Quarter: 2016Q3

REPORT INFORMATION
  Report Type: Spontaneous
  Country: US (occurrence: US)
  Receive Date: 20160815
  Receipt Date: 20160815
  Transmission Date: 20161109
  Serious: No
  Sender: FDA-Public Use
  Company Number: US-TEVA-677957USA

PATIENT
  Sex: Male

DRUGS (1)
  1. SYNRIBO [Suspect]
     Active Substance: OMACETAXINE MEPESUCCINATE
     Indication: CHRONIC MYELOID LEUKAEMIA
     Dosage: 5 MILLIGRAM DAILY; HOME ADMINISTRATION-WICE DAILY FOR 14 DAYS OF  A 28 DAY CYCLE
     Route: 065
     Dates: start: 201606

REACTIONS (2)
  - Injection site bruising [Not Recovered/Not Resolved]
  - Injection site exfoliation [Not Recovered/Not Resolved]
